FAERS Safety Report 24682270 (Version 1)
Quarter: 2024Q4

REPORT INFORMATION
  Report Type: Spontaneous
  Country: CN (occurrence: CN)
  Receive Date: 20241130
  Receipt Date: 20241130
  Transmission Date: 20250114
  Serious: Yes (Other)
  Sender: ACCORD
  Company Number: CN-MLMSERVICE-20241113-PI255614-00194-1

PATIENT
  Age: 37 Year
  Sex: Female

DRUGS (13)
  1. LETROZOLE [Suspect]
     Active Substance: LETROZOLE
     Indication: Triple positive breast cancer
     Dosage: ADDED 2 WEEKS AFTER A SLIGHT IMPROVEMENT IN LIVER FUNCTION
  2. ABEMACICLIB [Suspect]
     Active Substance: ABEMACICLIB
     Indication: Triple positive breast cancer
     Dosage: FIRST CYCLE
     Dates: start: 202112
  3. GOSERELIN [Concomitant]
     Active Substance: GOSERELIN
     Indication: Therapeutic ovarian suppression
  4. DENOSUMAB [Concomitant]
     Active Substance: DENOSUMAB
     Indication: Prophylaxis
  5. LETROZOLE [Suspect]
     Active Substance: LETROZOLE
     Indication: Metastases to bone
     Dosage: ADDED 2 WEEKS AFTER A SLIGHT IMPROVEMENT IN LIVER FUNCTION
  6. LETROZOLE [Suspect]
     Active Substance: LETROZOLE
     Indication: Metastases to liver
     Dosage: ADDED 2 WEEKS AFTER A SLIGHT IMPROVEMENT IN LIVER FUNCTION
  7. LETROZOLE [Suspect]
     Active Substance: LETROZOLE
     Indication: Lymphangiosis carcinomatosa
     Dosage: ADDED 2 WEEKS AFTER A SLIGHT IMPROVEMENT IN LIVER FUNCTION
  8. LETROZOLE [Suspect]
     Active Substance: LETROZOLE
     Indication: Breast cancer metastatic
     Dosage: ADDED 2 WEEKS AFTER A SLIGHT IMPROVEMENT IN LIVER FUNCTION
  9. ABEMACICLIB [Suspect]
     Active Substance: ABEMACICLIB
     Indication: Metastases to liver
     Dosage: FIRST CYCLE
     Dates: start: 202112
  10. ABEMACICLIB [Suspect]
     Active Substance: ABEMACICLIB
     Indication: Lymphangiosis carcinomatosa
     Dosage: FIRST CYCLE
     Dates: start: 202112
  11. ABEMACICLIB [Suspect]
     Active Substance: ABEMACICLIB
     Indication: Breast cancer metastatic
     Dosage: FIRST CYCLE
     Dates: start: 202112
  12. ABEMACICLIB [Suspect]
     Active Substance: ABEMACICLIB
     Indication: Triple positive breast cancer
     Dosage: FROM SECOND CYCLE
     Dates: start: 202112
  13. ABEMACICLIB [Suspect]
     Active Substance: ABEMACICLIB
     Indication: Metastases to bone
     Dosage: FIRST CYCLE
     Dates: start: 202112

REACTIONS (2)
  - Neutropenia [Unknown]
  - Diarrhoea [Recovering/Resolving]

NARRATIVE: CASE EVENT DATE: 20220201
